FAERS Safety Report 7347027-8 (Version None)
Quarter: 2011Q1

REPORT INFORMATION
  Report Type: 
  Country: None (occurrence: None)
  Receive Date: 20110311
  Receipt Date: 20110304
  Transmission Date: 20110831
  Serious: Yes (Death, Hospitalization)
  Sender: FDA-Public Use
  Company Number: PHHO2010US16418

PATIENT
  Age: 54 Year
  Sex: Male
  Weight: 113.4 kg

DRUGS (23)
  1. PRAVASTATIN [Concomitant]
  2. TACROLIMUS [Concomitant]
  3. CYCLOSPORINE [Concomitant]
  4. FUROSEMIDE [Concomitant]
  5. CLOBETASOL PROPIONATE [Concomitant]
  6. SENNA [Concomitant]
  7. METOPROLOL TARTRATE [Concomitant]
  8. BACTRIM [Concomitant]
  9. ALDESLEUKIN [Suspect]
     Dosage: UNK
     Route: 058
     Dates: start: 20100908, end: 20101014
  10. ACYCLOVIR [Concomitant]
     Dosage: UNK
  11. PILOCARPINE [Concomitant]
  12. LISINOPRIL [Concomitant]
  13. WARFARIN [Concomitant]
  14. ALDESLEUKIN [Suspect]
     Indication: CHRONIC GRAFT VERSUS HOST DISEASE
     Dosage: DAILY
     Route: 058
     Dates: start: 20100830, end: 20100906
  15. ALDESLEUKIN [Suspect]
     Dosage: NO TREATMENT
     Dates: start: 20100907, end: 20100907
  16. DEXAMETHASONE [Concomitant]
  17. COLACE [Concomitant]
  18. PANTOPRAZOLE [Concomitant]
  19. VITAMIN D [Concomitant]
  20. FLUCONAZOLE [Concomitant]
  21. PENTAMIDINE ISETHIONATE [Concomitant]
  22. OMEPRAZOLE [Concomitant]
  23. PREDNISONE TAB [Concomitant]

REACTIONS (23)
  - INFECTION [None]
  - CHEST DISCOMFORT [None]
  - DIVERTICULUM [None]
  - ACUTE CORONARY SYNDROME [None]
  - RECTAL FISSURE [None]
  - VENTRICULAR ARRHYTHMIA [None]
  - RECTAL HAEMORRHAGE [None]
  - GASTROINTESTINAL ARTERIOVENOUS MALFORMATION [None]
  - INTRACARDIAC THROMBUS [None]
  - HYPOTENSION [None]
  - ACUTE MYOCARDIAL INFARCTION [None]
  - CHEST PAIN [None]
  - DYSPNOEA [None]
  - EROSIVE OESOPHAGITIS [None]
  - TACHYCARDIA [None]
  - LOWER GASTROINTESTINAL HAEMORRHAGE [None]
  - VENTRICULAR HYPOKINESIA [None]
  - DEEP VEIN THROMBOSIS [None]
  - ARTERIOSCLEROSIS [None]
  - FAECES DISCOLOURED [None]
  - PYREXIA [None]
  - CARDIAC ARREST [None]
  - CLOSTRIDIAL INFECTION [None]
